FAERS Safety Report 8848777 (Version 1)
Quarter: 2012Q4

REPORT INFORMATION
  Report Type: 
  Country: US (occurrence: US)
  Receive Date: 20121018
  Receipt Date: 20121018
  Transmission Date: 20130627
  Serious: Yes (Hospitalization)
  Sender: FDA-Public Use
  Company Number: US-BAYER-2012-106309

PATIENT
  Age: 35 Year
  Sex: Female

DRUGS (4)
  1. YASMIN [Suspect]
  2. ALLEGRA [Concomitant]
  3. LORTAB [Concomitant]
  4. WELLBUTRIN [Concomitant]

REACTIONS (1)
  - Pulmonary embolism [None]
